FAERS Safety Report 9916509 (Version 2)
Quarter: 2014Q1

REPORT INFORMATION
  Report Type: Spontaneous
  Country: JP (occurrence: JP)
  Receive Date: 20140221
  Receipt Date: 20140307
  Transmission Date: 20141002
  Serious: Yes (Death, Other)
  Sender: FDA-Public Use
  Company Number: JP-NOVOPROD-400384

PATIENT
  Sex: 0

DRUGS (1)
  1. NOVORAPID CHU [Suspect]
     Indication: GESTATIONAL DIABETES
     Dosage: 3 U, TID
     Route: 064
     Dates: start: 201307

REACTIONS (3)
  - Neonatal asphyxia [Fatal]
  - Premature baby [Not Recovered/Not Resolved]
  - Foetal exposure during pregnancy [Recovered/Resolved]
